FAERS Safety Report 5755120-6 (Version None)
Quarter: 2008Q2

REPORT INFORMATION
  Report Type: 
  Country: None (occurrence: None)
  Receive Date: 20080602
  Receipt Date: 20080401
  Transmission Date: 20081010
  Serious: No
  Sender: FDA-Public Use
  Company Number: A0713049A

PATIENT
  Age: 18 Month
  Sex: Female
  Weight: 10 kg

DRUGS (1)
  1. AUGMENTIN '125' [Suspect]
     Indication: DRUG USE FOR UNKNOWN INDICATION
     Route: 048
     Dates: start: 20080218, end: 20080222

REACTIONS (3)
  - DERMATITIS DIAPER [None]
  - DIARRHOEA [None]
  - DRUG INEFFECTIVE [None]
